FAERS Safety Report 19391163 (Version 1)
Quarter: 2021Q2

REPORT INFORMATION
  Report Type: Spontaneous
  Country: US (occurrence: US)
  Receive Date: 20210608
  Receipt Date: 20210608
  Transmission Date: 20210717
  Serious: Yes (Other)
  Sender: FDA-Public Use
  Company Number: US-STANDARD HOMEOPATHIC-2112486

PATIENT
  Sex: Female

DRUGS (1)
  1. NERVE TONIC [Suspect]
     Active Substance: HOMEOPATHICS
     Indication: NERVOUSNESS
     Route: 048

REACTIONS (1)
  - Dyspnoea [Recovered/Resolved]
